FAERS Safety Report 8895634 (Version 1)
Quarter: 2012Q4

REPORT INFORMATION
  Report Type: 
  Country: US (occurrence: US)
  Receive Date: 20121108
  Receipt Date: 20121108
  Transmission Date: 20130627
  Serious: Yes (Hospitalization)
  Sender: FDA-Public Use
  Company Number: US-ASTRAZENECA-2012SE83248

PATIENT
  Age: 55 Year
  Sex: Female

DRUGS (2)
  1. PULMICORT RESPULES [Suspect]
     Route: 055
  2. SYMBICORT PMDI [Suspect]
     Dosage: 160/ 4.5 MCG, DAILY
     Route: 055

REACTIONS (2)
  - Respiratory failure [Unknown]
  - Drug dose omission [Unknown]
